FAERS Safety Report 14531435 (Version 4)
Quarter: 2018Q2

REPORT INFORMATION
  Report Type: Spontaneous
  Country: US (occurrence: US)
  Receive Date: 20180214
  Receipt Date: 20180405
  Transmission Date: 20180711
  Serious: No
  Sender: FDA-Public Use
  Company Number: PHEH2018US005440

PATIENT
  Sex: Female

DRUGS (1)
  1. TIMOLOL. [Suspect]
     Active Substance: TIMOLOL
     Indication: PRODUCT USED FOR UNKNOWN INDICATION
     Dosage: UNK
     Route: 047

REACTIONS (4)
  - Accidental exposure to product [Unknown]
  - Product dropper issue [Unknown]
  - Inappropriate schedule of drug administration [Unknown]
  - Product physical consistency issue [Unknown]
